FAERS Safety Report 9665384 (Version 2)
Quarter: 2013Q4

REPORT INFORMATION
  Report Type: Spontaneous
  Country: US (occurrence: US)
  Receive Date: 20131104
  Receipt Date: 20131107
  Transmission Date: 20140711
  Serious: Yes (Hospitalization, Other)
  Sender: FDA-Public Use
  Company Number: US-BAXTER-2013BAX042807

PATIENT
  Age: 82 Year
  Sex: Female

DRUGS (2)
  1. DIANEAL LOW CALCIUM [Suspect]
     Indication: PERITONEAL DIALYSIS
     Route: 033
     Dates: start: 201101
  2. DIANEAL LOW CALCIUM [Suspect]
     Indication: PERITONEAL DIALYSIS
     Route: 033
     Dates: start: 201101

REACTIONS (5)
  - Fall [Recovering/Resolving]
  - Hip fracture [Recovering/Resolving]
  - Insomnia [Recovering/Resolving]
  - Clostridium difficile infection [Recovered/Resolved]
  - Peritonitis [Recovered/Resolved]
